FAERS Safety Report 12139823 (Version 8)
Quarter: 2020Q4

REPORT INFORMATION
  Report Type: Spontaneous
  Country: US (occurrence: US)
  Receive Date: 20160303
  Receipt Date: 20201027
  Transmission Date: 20210113
  Serious: Yes (Congenital Anomaly, Other)
  Sender: FDA-Public Use
  Company Number: PHEH2016US005031

PATIENT
  Sex: Female

DRUGS (3)
  1. ZOFRAN [Suspect]
     Active Substance: ONDANSETRON HYDROCHLORIDE
     Indication: FOETAL EXPOSURE DURING PREGNANCY
     Route: 064
  2. ZOFRAN ODT [Suspect]
     Active Substance: ONDANSETRON HYDROCHLORIDE
     Indication: FOETAL EXPOSURE DURING PREGNANCY
     Dosage: MOTHER^S DOSE: 04 MG, PRN
     Route: 064
  3. ZOFRAN [Suspect]
     Active Substance: ONDANSETRON HYDROCHLORIDE
     Indication: FOETAL EXPOSURE DURING PREGNANCY
     Dosage: MOTHER DOSE: 2 MG BID
     Route: 064

REACTIONS (60)
  - Heart disease congenital [Unknown]
  - Pain [Unknown]
  - Upper respiratory tract infection [Unknown]
  - Urticaria [Unknown]
  - Ear pain [Unknown]
  - Skin abrasion [Unknown]
  - Strabismus [Unknown]
  - Nasal congestion [Unknown]
  - Oral disorder [Unknown]
  - Congenital anomaly [Unknown]
  - Pneumonia [Unknown]
  - Cough [Unknown]
  - Sinus tachycardia [Unknown]
  - Oppositional defiant disorder [Unknown]
  - Major depression [Unknown]
  - Injury [Unknown]
  - Emotional distress [Unknown]
  - Chest pain [Unknown]
  - School refusal [Unknown]
  - Social anxiety disorder [Unknown]
  - Constipation [Unknown]
  - Limb injury [Unknown]
  - Scoliosis [Unknown]
  - Headache [Unknown]
  - Pain in extremity [Unknown]
  - Exposure to fungus [Unknown]
  - Pyrexia [Unknown]
  - Foetal exposure during pregnancy [Unknown]
  - Abdominal pain [Unknown]
  - Gastritis [Unknown]
  - Wrist fracture [Unknown]
  - Cardiac disorder [Unknown]
  - Otitis externa [Unknown]
  - Eye pain [Unknown]
  - Generalised anxiety disorder [Unknown]
  - Atrial septal defect [Unknown]
  - Anhedonia [Unknown]
  - Chronic gastritis [Unknown]
  - Vomiting [Unknown]
  - Flatulence [Unknown]
  - Otitis media [Unknown]
  - Eye injury [Unknown]
  - Pharyngitis [Unknown]
  - Dermatitis [Unknown]
  - Otitis media acute [Unknown]
  - Bronchitis [Unknown]
  - Diarrhoea [Unknown]
  - Cerumen impaction [Unknown]
  - Depression [Unknown]
  - Irritability [Unknown]
  - Panic disorder [Unknown]
  - Anxiety [Unknown]
  - Wheezing [Unknown]
  - Oropharyngeal pain [Unknown]
  - Viral infection [Unknown]
  - Amblyopia [Unknown]
  - Back pain [Unknown]
  - Anger [Unknown]
  - Foreign body [Unknown]
  - Gastroenteritis [Unknown]
